FAERS Safety Report 7053531-2 (Version None)
Quarter: 2010Q4

REPORT INFORMATION
  Report Type: 
  Country: None (occurrence: None)
  Receive Date: 20101020
  Receipt Date: 20101011
  Transmission Date: 20110411
  Serious: No
  Sender: FDA-Public Use
  Company Number: US-JNJFOC-20101003185

PATIENT
  Sex: Male
  Weight: 81.65 kg

DRUGS (3)
  1. UNSPECIFIED FENTANYL [Suspect]
     Indication: PAIN
     Route: 062
  2. UNSPECIFIED FENTANYL [Suspect]
     Route: 062
  3. LISINOPRIL [Concomitant]
     Indication: HYPERTENSION
     Route: 048

REACTIONS (3)
  - PRODUCT ADHESION ISSUE [None]
  - THERAPEUTIC RESPONSE DECREASED [None]
  - WRONG TECHNIQUE IN DRUG USAGE PROCESS [None]
